FAERS Safety Report 8252571-5 (Version None)
Quarter: 2012Q2

REPORT INFORMATION
  Report Type: 
  Country: None (occurrence: None)
  Receive Date: 20120402
  Receipt Date: 20120319
  Transmission Date: 20120825
  Serious: Yes (Hospitalization)
  Sender: FDA-Public Use
  Company Number: KR-BAXTER-2012BAX000256

PATIENT
  Sex: Female
  Weight: 49 kg

DRUGS (4)
  1. DIANEAL LOW CALCIUM PD 2.5% [Suspect]
  2. DIANEAL LOW CALCIUM PD 2.5% [Suspect]
     Route: 033
     Dates: start: 20100913
  3. EXTRANEAL [Suspect]
     Route: 033
     Dates: start: 20100913
  4. EXTRANEAL [Suspect]

REACTIONS (3)
  - PULMONARY OEDEMA [None]
  - PLEURAL EFFUSION [None]
  - ULTRAFILTRATION FAILURE [None]
